FAERS Safety Report 8320974-6 (Version None)
Quarter: 2012Q2

REPORT INFORMATION
  Report Type: 
  Country: None (occurrence: None)
  Receive Date: 20120430
  Receipt Date: 20120424
  Transmission Date: 20120825
  Serious: Yes (Hospitalization)
  Sender: FDA-Public Use
  Company Number: PHHY2012AT035704

PATIENT
  Age: 67 Year
  Sex: Female
  Weight: 88 kg

DRUGS (14)
  1. SUCRALFATE [Concomitant]
     Dosage: 1 DF, TID
  2. PROTON PUMP INHIBITORS [Concomitant]
     Dosage: 40 MG, 1-0-0
  3. PYRIDOXINE HYDROCHLORIDE [Concomitant]
     Dosage: 1 DF, BID
  4. EXFORGE [Concomitant]
     Dosage: 1 DF, QD
  5. THIAMINE DISULFIDE [Concomitant]
     Dosage: 1 DF, BID
  6. ARIMIDEX [Concomitant]
     Dosage: 1 DF, QD
     Route: 048
  7. PANTOPRAZOLE [Concomitant]
  8. CYANOCOBALAMIN [Concomitant]
     Dosage: 1 DF, BID
  9. DIABETEX [Concomitant]
     Dosage: 100 MG- 0- 850 MG
     Route: 048
  10. ZOMETA [Suspect]
     Indication: METASTASES TO BONE
     Dosage: 4 MG, ONCE IN 3 MONTHS
     Dates: start: 20111003
  11. TIZANIDINE HCL [Concomitant]
     Dosage: 4 MG, QD
  12. ZOMETA [Suspect]
     Dosage: 4 MG, 1 TIMES IN 3 MONTHS
     Dates: start: 20111201
  13. ZOMETA [Suspect]
     Dosage: 4 MG, 1 TIMES IN 3 MONTHS
     Dates: start: 20120126
  14. AMARYL [Concomitant]
     Dosage: 3 MG, QD

REACTIONS (1)
  - OSTEONECROSIS OF JAW [None]
